FAERS Safety Report 21355771 (Version 1)
Quarter: 2022Q3

REPORT INFORMATION
  Report Type: Spontaneous
  Country: US (occurrence: US)
  Receive Date: 20220920
  Receipt Date: 20220920
  Transmission Date: 20221027
  Serious: Yes (Other)
  Sender: FDA-Public Use
  Company Number: US-THERAPEUTICSMD-2021TMD02056

PATIENT
  Age: 31 Year
  Sex: Female

DRUGS (1)
  1. ANNOVERA [Suspect]
     Active Substance: ETHINYL ESTRADIOL\SEGESTERONE ACETATE
     Route: 067

REACTIONS (3)
  - Deep vein thrombosis [Unknown]
  - Pelvic pain [Unknown]
  - Product administration error [Unknown]
